FAERS Safety Report 7701351-5 (Version None)
Quarter: 2011Q3

REPORT INFORMATION
  Report Type: 
  Country: None (occurrence: None)
  Receive Date: 20110822
  Receipt Date: 20110805
  Transmission Date: 20111222
  Serious: Yes (Hospitalization, Other)
  Sender: FDA-Public Use
  Company Number: PHHY2011BE71607

PATIENT
  Age: 15 Day
  Sex: Female

DRUGS (1)
  1. METHERGINE [Suspect]
     Dosage: UNK UKN, UNK
     Route: 048

REACTIONS (8)
  - WRONG DRUG ADMINISTERED [None]
  - APNOEA [None]
  - DIARRHOEA [None]
  - ALTERED STATE OF CONSCIOUSNESS [None]
  - RETINAL ISCHAEMIA [None]
  - VOMITING [None]
  - HEART RATE INCREASED [None]
  - RETINAL HAEMORRHAGE [None]
